FAERS Safety Report 5035511-1 (Version None)
Quarter: 2006Q2

REPORT INFORMATION
  Report Type: 
  Country: None (occurrence: None)
  Receive Date: 20060525
  Receipt Date: 20060223
  Transmission Date: 20061013
  Serious: Yes (Hospitalization)
  Sender: FDA-Public Use
  Company Number: S05-USA-05172-01

PATIENT
  Age: 50 Year
  Sex: Female

DRUGS (14)
  1. CAMPRAL [Suspect]
     Indication: ALCOHOLISM
     Dosage: 666 MG TID PO
     Route: 048
     Dates: start: 20051025, end: 20051205
  2. CELEXA [Suspect]
     Indication: BIPOLAR DISORDER
     Dosage: SEE IMAGE
     Route: 048
     Dates: end: 20051108
  3. CELEXA [Suspect]
     Indication: BIPOLAR DISORDER
     Dosage: SEE IMAGE
     Route: 048
     Dates: start: 20051109, end: 20051201
  4. CELEXA [Suspect]
     Indication: BIPOLAR DISORDER
     Dosage: SEE IMAGE
     Route: 048
     Dates: start: 20020901
  5. WELLBUTRIN SR [Suspect]
     Indication: BIPOLAR DISORDER
     Dosage: 150 MG QD
     Dates: start: 20051109
  6. RISPERDAL [Suspect]
     Indication: BIPOLAR DISORDER
     Dosage: 1 MG QHS
     Dates: start: 20051109
  7. NEURONTIN [Concomitant]
  8. DEPAKOTE [Concomitant]
  9. GLYBURIDE [Concomitant]
  10. LACTULOSE [Concomitant]
  11. CORGARD [Concomitant]
  12. SYNTHROID [Concomitant]
  13. CALTRATE(CALCIUM CARBONATE) [Concomitant]
  14. MULTI-VITAMIN [Concomitant]

REACTIONS (3)
  - ANORGASMIA [None]
  - DRUG LEVEL DECREASED [None]
  - ENCEPHALOPATHY [None]
